FAERS Safety Report 17769036 (Version 1)
Quarter: 2020Q2

REPORT INFORMATION
  Report Type: Spontaneous
  Country: US (occurrence: US)
  Receive Date: 20200512
  Receipt Date: 20200512
  Transmission Date: 20200714
  Serious: No
  Sender: FDA-Public Use
  Company Number: US-GLAXOSMITHKLINE-US2020078879

PATIENT

DRUGS (1)
  1. ALLI [Suspect]
     Active Substance: ORLISTAT

REACTIONS (2)
  - Diarrhoea [Unknown]
  - Drug ineffective [Unknown]
